FAERS Safety Report 4984307-5 (Version None)
Quarter: 2006Q2

REPORT INFORMATION
  Report Type: 
  Country: None (occurrence: None)
  Receive Date: 20060420
  Receipt Date: 20060405
  Transmission Date: 20061013
  Serious: Yes (Hospitalization)
  Sender: FDA-Public Use
  Company Number: GBR-2006-0002205

PATIENT
  Age: 75 Year
  Sex: Female

DRUGS (5)
  1. OXYCONTIN [Suspect]
     Dosage: ORAL
     Route: 048
     Dates: end: 20060218
  2. ATARAX [Suspect]
     Dosage: 100 MG, DAILY, ORAL
     Route: 048
     Dates: end: 20060214
  3. MYLOSTAN (TETRAZEPAM) [Suspect]
     Dosage: 3 UNIT, DAILY, ORAL
     Route: 048
     Dates: end: 20060218
  4. LEXOMIL (BROMAZEPAM) [Concomitant]
  5. EFFEXOR [Concomitant]

REACTIONS (2)
  - DEPRESSED LEVEL OF CONSCIOUSNESS [None]
  - DISORIENTATION [None]
